FAERS Safety Report 8905690 (Version 1)
Quarter: 2012Q4

REPORT INFORMATION
  Report Type: 
  Country: GB (occurrence: GB)
  Receive Date: 20121109
  Receipt Date: 20121109
  Transmission Date: 20130627
  Serious: Yes (Disabling)
  Sender: FDA-Public Use
  Company Number: GB-WATSON-2012-18726

PATIENT
  Age: 72 Year
  Sex: Female
  Weight: 80 kg

DRUGS (3)
  1. AMLODIPINE (UNKNOWN) [Suspect]
     Indication: HYPERTENSION
     Dosage: 5mg
     Route: 065
     Dates: start: 20121005, end: 20121010
  2. SIMVASTATIN [Concomitant]
     Indication: BLOOD CHOLESTEROL INCREASED
     Dosage: 20mg
     Route: 065
  3. ASPIRIN [Concomitant]
     Indication: HYPERTENSION
     Dosage: 75mg
     Route: 065

REACTIONS (2)
  - Joint swelling [Recovering/Resolving]
  - Oedema peripheral [Recovering/Resolving]
